FAERS Safety Report 4688538-3 (Version None)
Quarter: 2005Q2

REPORT INFORMATION
  Report Type: 
  Country: None (occurrence: None)
  Receive Date: 20050609
  Receipt Date: 20050527
  Transmission Date: 20051028
  Serious: No
  Sender: FDA-Public Use
  Company Number: OSH-087-0299625

PATIENT
  Age: 68 Year
  Sex: Male

DRUGS (6)
  1. PRECEDEX INJECTION (DEXMEDETOMIDINE HYDROCHLORIDE INJECTION) (DEXMEDET [Suspect]
     Indication: SEDATION
     Dosage: 67 MCG, NOT REPORTED, INTRAVENOUS
     Route: 042
     Dates: start: 20050525, end: 20050525
  2. SEVOFLURANE [Suspect]
     Indication: ANAESTHESIA
     Dosage: 80 ML, NOT REPORTED, INHALATION
     Route: 055
     Dates: start: 20050525, end: 20050525
  3. MIDAZOLAM HCL [Suspect]
     Indication: ANAESTHESIA
     Dosage: 10 MG, NOT REPORTED, INTRAVENOUS
     Route: 042
     Dates: start: 20050525, end: 20050525
  4. VECURONIUM BROMIDE [Suspect]
     Indication: ANAESTHESIA
     Dosage: 16 MG, NOT REPORTED, INTRAVENOUS
     Route: 042
     Dates: start: 20050525, end: 20050525
  5. PROPOFOL [Suspect]
     Indication: ANAESTHESIA
     Dosage: 1200 MG, NOT REPORTED, INTRAVENOUS
     Route: 042
     Dates: start: 20050525, end: 20050525
  6. FENTANYL [Suspect]
     Indication: ANAESTHESIA
     Dosage: 600 MG, NOT REPORTED, INTRAVENOUS
     Route: 042
     Dates: start: 20050525, end: 20050525

REACTIONS (3)
  - ANAESTHETIC COMPLICATION [None]
  - GLOSSOPTOSIS [None]
  - OXYGEN SATURATION DECREASED [None]
